FAERS Safety Report 9030412 (Version 1)
Quarter: 2013Q1

REPORT INFORMATION
  Report Type: Spontaneous
  Country: US (occurrence: US)
  Receive Date: 20130122
  Receipt Date: 20130122
  Transmission Date: 20140127
  Serious: Yes (Life-Threatening, Other)
  Sender: FDA-Public Use
  Company Number: US-ROCHE-1168848

PATIENT
  Age: 48 Year
  Sex: Male
  Weight: 128.48 kg

DRUGS (11)
  1. PEGASYS [Suspect]
     Indication: CHRONIC HEPATITIS C
     Route: 065
     Dates: start: 2006
  2. PEGASYS [Suspect]
     Route: 058
     Dates: start: 20081121, end: 20081221
  3. PEGASYS [Suspect]
     Route: 058
     Dates: start: 2009
  4. RIBAVIRIN [Suspect]
     Indication: CHRONIC HEPATITIS C
     Route: 065
     Dates: start: 2006
  5. RIBAVIRIN [Suspect]
     Route: 048
     Dates: start: 20081121, end: 20081221
  6. RIBAVIRIN [Suspect]
     Dosage: IN DIVIDED DOSES
     Route: 048
     Dates: start: 2009
  7. MILK THISTLE [Concomitant]
     Indication: HEPATITIS C
     Route: 048
  8. OMEGA 3 [Concomitant]
     Route: 048
  9. OXYCODONE [Concomitant]
     Indication: PAIN
     Route: 048
  10. XANAX [Concomitant]
     Indication: ANXIETY
     Route: 048
  11. SYNTHROID [Concomitant]
     Indication: HYPOTHYROIDISM
     Route: 048
     Dates: start: 20081222

REACTIONS (17)
  - Nausea [Unknown]
  - Decreased appetite [Unknown]
  - Insomnia [Unknown]
  - Fall [Unknown]
  - Gait disturbance [Unknown]
  - Syncope [Unknown]
  - Confusional state [Unknown]
  - Disturbance in attention [Unknown]
  - Memory impairment [Unknown]
  - Vision blurred [Unknown]
  - Hepatic enzyme increased [Unknown]
  - Hallucination, visual [Unknown]
  - Hallucination, auditory [Unknown]
  - Pain in extremity [Unknown]
  - Arthralgia [Unknown]
  - Fatigue [Unknown]
  - Rhabdomyolysis [Recovered/Resolved]
